FAERS Safety Report 5885791-5 (Version None)
Quarter: 2008Q3

REPORT INFORMATION
  Report Type: 
  Country: None (occurrence: None)
  Receive Date: 20080917
  Receipt Date: 20080908
  Transmission Date: 20090109
  Serious: Yes (Hospitalization)
  Sender: FDA-Public Use
  Company Number: GB-RANBAXY-2008RR-17959

PATIENT

DRUGS (10)
  1. CO-DYDRAMOL TABLETS BP 10/500MG [Suspect]
  2. ASPIRIN [Concomitant]
  3. CALCICHEW [Concomitant]
  4. CETIRIZINE HCL [Concomitant]
  5. INDAPAMIDE [Concomitant]
  6. NIFEDIPINE [Concomitant]
  7. ACETAMINOPHEN [Concomitant]
  8. QUININE [Concomitant]
  9. RAMIPRIL [Concomitant]
  10. RISEDRONATE SODIUM [Concomitant]

REACTIONS (4)
  - ANAPHYLACTIC REACTION [None]
  - ANGIOEDEMA [None]
  - PRURITUS [None]
  - SWELLING FACE [None]
